FAERS Safety Report 5425231-3 (Version None)
Quarter: 2007Q3

REPORT INFORMATION
  Report Type: 
  Country: None (occurrence: None)
  Receive Date: 20070824
  Receipt Date: 20070814
  Transmission Date: 20080115
  Serious: Yes (Other)
  Sender: FDA-Public Use
  Company Number: US-PFIZER INC-2007067764

PATIENT
  Sex: Female
  Weight: 56.7 kg

DRUGS (2)
  1. CHANTIX [Suspect]
     Indication: SMOKING CESSATION THERAPY
  2. PERCOCET [Suspect]
     Indication: PAIN

REACTIONS (4)
  - CONSTIPATION [None]
  - INSOMNIA [None]
  - LUNG NEOPLASM MALIGNANT [None]
  - PAIN [None]
